FAERS Safety Report 5820158-7 (Version None)
Quarter: 2008Q3

REPORT INFORMATION
  Report Type: 
  Country: None (occurrence: None)
  Receive Date: 20080724
  Receipt Date: 20080714
  Transmission Date: 20090109
  Serious: Yes (Other)
  Sender: FDA-Public Use
  Company Number: PHBS2006JP07805

PATIENT
  Sex: Female

DRUGS (1)
  1. AREDIA [Suspect]
     Indication: MULTIPLE MYELOMA
     Route: 042
     Dates: start: 20040101, end: 20060101

REACTIONS (4)
  - DENTAL CARIES [None]
  - OSTEOMYELITIS [None]
  - PERIODONTAL DISEASE [None]
  - TOOTH EXTRACTION [None]
